FAERS Safety Report 6340050-1 (Version None)
Quarter: 2009Q3

REPORT INFORMATION
  Report Type: 
  Country: None (occurrence: None)
  Receive Date: 20090903
  Receipt Date: 20090825
  Transmission Date: 20100115
  Serious: Yes (Death)
  Sender: FDA-Public Use
  Company Number: IT-GENENTECH-289628

PATIENT

DRUGS (1)
  1. MABTHERA [Suspect]
     Indication: MANTLE CELL LYMPHOMA
     Route: 065

REACTIONS (3)
  - DEATH [None]
  - NEOPLASM MALIGNANT [None]
  - TREATMENT FAILURE [None]
